FAERS Safety Report 4869177-8 (Version None)
Quarter: 2005Q4

REPORT INFORMATION
  Report Type: 
  Country: None (occurrence: None)
  Receive Date: 20051228
  Receipt Date: 20051228
  Transmission Date: 20060501
  Serious: Yes (Other)
  Sender: FDA-Public Use
  Company Number: None

PATIENT
  Sex: Male
  Weight: 41 kg

DRUGS (7)
  1. AMOXICILLIN + CLAVULANATE POTASSIUM [Suspect]
     Indication: INFECTION
     Dosage: 875/125 MG ONE BID ROUTE 047
     Dates: start: 20051217
  2. AMOXICILLIN + CLAVULANATE POTASSIUM [Suspect]
     Indication: LYMPHADENOPATHY
     Dosage: 875/125 MG ONE BID ROUTE 047
     Dates: start: 20051217
  3. TENEX [Concomitant]
  4. STRATTERA [Concomitant]
  5. DEPAKOTE [Concomitant]
  6. GEODON [Concomitant]
  7. SEROQUEL [Concomitant]

REACTIONS (1)
  - HALLUCINATION [None]
